FAERS Safety Report 5867321-7 (Version None)
Quarter: 2008Q3

REPORT INFORMATION
  Report Type: 
  Country: None (occurrence: None)
  Receive Date: 20080902
  Receipt Date: 20080825
  Transmission Date: 20090109
  Serious: Yes (Other)
  Sender: FDA-Public Use
  Company Number: US-ASTRAZENECA-2007UW10877

PATIENT
  Age: 64 Year
  Sex: Female
  Weight: 58.1 kg

DRUGS (2)
  1. ARIMIDEX [Suspect]
     Indication: BREAST CANCER STAGE III
     Route: 048
     Dates: start: 20060601
  2. RADIATION [Suspect]
     Dates: end: 20060801

REACTIONS (15)
  - ALOPECIA [None]
  - ASTHENIA [None]
  - CATARACT [None]
  - DEPRESSION [None]
  - DIZZINESS [None]
  - HOT FLUSH [None]
  - ILL-DEFINED DISORDER [None]
  - INSOMNIA [None]
  - MUSCULOSKELETAL STIFFNESS [None]
  - NAUSEA [None]
  - NECK PAIN [None]
  - OSTEOPOROSIS [None]
  - PAIN [None]
  - SKIN REACTION [None]
  - VOMITING [None]
